FAERS Safety Report 9891370 (Version 1)
Quarter: 2014Q1

REPORT INFORMATION
  Report Type: Spontaneous
  Country: DK (occurrence: None)
  Receive Date: 20140210
  Receipt Date: 20140210
  Transmission Date: 20141002
  Serious: Yes (Hospitalization, Other)
  Sender: FDA-Public Use
  Company Number: CO-OR-DK-2014-008

PATIENT
  Age: 9 Year
  Sex: Female

DRUGS (4)
  1. PREDNISOLONE [Suspect]
     Indication: GRAFT VERSUS HOST DISEASE
  2. TACROLIMUS [Suspect]
     Indication: GRAFT VERSUS HOST DISEASE
  3. HORSE ANTITHYMOCYTE GLOBULIN [Suspect]
     Indication: GRAFT VERSUS HOST DISEASE
  4. CYCLOSPORIN A [Suspect]
     Indication: GRAFT VERSUS HOST DISEASE

REACTIONS (10)
  - Post transplant lymphoproliferative disorder [None]
  - Toxicity to various agents [None]
  - Hypogammaglobulinaemia [None]
  - Central nervous system viral infection [None]
  - Epstein-Barr virus infection [None]
  - Graft versus host disease in skin [None]
  - Graft versus host disease in liver [None]
  - Graft versus host disease in intestine [None]
  - Radiculitis [None]
  - Respiratory failure [None]
